FAERS Safety Report 8840084 (Version 1)
Quarter: 2012Q4

REPORT INFORMATION
  Report Type: Report from Study
  Country: KR (occurrence: KR)
  Receive Date: 20121015
  Receipt Date: 20121015
  Transmission Date: 20130627
  Serious: Yes (Hospitalization)
  Sender: FDA-Public Use
  Company Number: KR-ROCHE-CID000000002182578

PATIENT
  Age: 43 Year
  Sex: Female

DRUGS (2)
  1. LAPATINIB [Suspect]
     Indication: BREAST CANCER
     Route: 048
     Dates: start: 20081113, end: 20091111
  2. TRASTUZUMAB [Suspect]
     Indication: BREAST CANCER
     Dosage: dose: unknown
     Route: 042
     Dates: start: 20111006, end: 20120830

REACTIONS (1)
  - Ventricular arrhythmia [Recovered/Resolved]
